FAERS Safety Report 4614896-1 (Version None)
Quarter: 2005Q1

REPORT INFORMATION
  Report Type: 
  Country: None (occurrence: None)
  Receive Date: 20050322
  Receipt Date: 20050317
  Transmission Date: 20050727
  Serious: Yes (Hospitalization)
  Sender: FDA-Public Use
  Company Number: FR-MERCK-0503FRA00075

PATIENT
  Age: 82 Year
  Sex: Male

DRUGS (10)
  1. ZOCOR [Suspect]
     Route: 048
     Dates: end: 20050218
  2. TRUSOPT [Suspect]
     Route: 047
  3. NITROGLYCERIN [Suspect]
     Route: 061
  4. AMOXICILLIN [Suspect]
     Indication: BRONCHITIS
     Route: 048
     Dates: start: 20050202, end: 20050208
  5. CAFEDRINE HYDROCHLORIDE AND THEODRENALINE HYDROCHLORIDE [Suspect]
     Route: 048
     Dates: end: 20050218
  6. ASPIRIN LYSINE [Suspect]
     Route: 048
     Dates: end: 20050208
  7. ZOLPIDEM TARTRATE [Concomitant]
     Route: 048
     Dates: end: 20050218
  8. ALUMINUM PHOSPHATE [Concomitant]
     Route: 048
     Dates: end: 20050218
  9. FLUCONAZOLE [Concomitant]
     Indication: BRONCHITIS
     Route: 048
     Dates: start: 20050128, end: 20050201
  10. RIFAMYCIN [Concomitant]
     Indication: CONJUNCTIVITIS
     Route: 047
     Dates: start: 20050202, end: 20050208

REACTIONS (1)
  - THROMBOCYTOPENIC PURPURA [None]
